FAERS Safety Report 4314242-7 (Version None)
Quarter: 2004Q1

REPORT INFORMATION
  Report Type: 
  Country: None (occurrence: None)
  Receive Date: 20040309
  Receipt Date: 20040309
  Transmission Date: 20041129
  Serious: No
  Sender: FDA-Public Use
  Company Number: None

PATIENT
  Age: 24 Year
  Sex: Female
  Weight: 81.6475 kg

DRUGS (1)
  1. TRINESSA (GENERIC ORTHO TRI CYCLEN) [Suspect]
     Indication: CONTRACEPTION
     Dosage: DAILY
     Dates: start: 20040202

REACTIONS (2)
  - METRORRHAGIA [None]
  - PHARMACEUTICAL PRODUCT COMPLAINT [None]
